FAERS Safety Report 5774321-4 (Version None)
Quarter: 2008Q2

REPORT INFORMATION
  Report Type: 
  Country: None (occurrence: None)
  Receive Date: 20080616
  Receipt Date: 20080605
  Transmission Date: 20081010
  Serious: Yes (Hospitalization)
  Sender: FDA-Public Use
  Company Number: PHHY2008IT10001

PATIENT
  Sex: Female

DRUGS (5)
  1. SANDIMMUNE [Suspect]
     Indication: PSORIASIS
     Dosage: 2 DOSE UNITS
     Route: 048
     Dates: start: 20080114, end: 20080306
  2. SANDIMMUNE [Suspect]
     Dosage: 150 MG/DAILY
     Route: 048
     Dates: start: 20080307, end: 20080321
  3. TACHIPIRINA [Suspect]
     Indication: HYPERPYREXIA
     Dosage: 2 DOSE UNITS
     Route: 048
     Dates: start: 20080306, end: 20080310
  4. PSORCUTAN [Concomitant]
     Dosage: 30G, 0.005% CREAM
  5. CALOMEL [Concomitant]
     Dosage: AT VASELINE 10%

REACTIONS (8)
  - ALANINE AMINOTRANSFERASE INCREASED [None]
  - ASPARTATE AMINOTRANSFERASE INCREASED [None]
  - BLOOD BILIRUBIN INCREASED [None]
  - GAMMA-GLUTAMYLTRANSFERASE INCREASED [None]
  - HEPATITIS ACUTE [None]
  - HYPERPYREXIA [None]
  - JAUNDICE [None]
  - PRURITUS [None]
